FAERS Safety Report 7500880-7 (Version None)
Quarter: 2011Q2

REPORT INFORMATION
  Report Type: 
  Country: None (occurrence: None)
  Receive Date: 20110524
  Receipt Date: 20110517
  Transmission Date: 20111010
  Serious: Yes (Life-Threatening, Hospitalization)
  Sender: FDA-Public Use
  Company Number: B0698428A

PATIENT
  Sex: Female
  Weight: 42 kg

DRUGS (50)
  1. METHOTREXATE [Suspect]
     Dosage: 13MGM2 PER DAY
     Route: 042
     Dates: start: 20100725, end: 20100725
  2. SLOW-K [Concomitant]
     Dosage: 2400MG PER DAY
     Route: 048
     Dates: start: 20100720, end: 20100726
  3. VANCOMYCIN [Concomitant]
     Dosage: 1G PER DAY
     Route: 042
     Dates: start: 20100922, end: 20100923
  4. ELCITONIN [Concomitant]
     Dosage: 80IU PER DAY
     Route: 030
     Dates: start: 20100909, end: 20100913
  5. MODACIN [Concomitant]
     Dosage: 4G PER DAY
     Route: 042
     Dates: start: 20100921, end: 20100923
  6. ELASPOL [Concomitant]
     Dosage: 200MG PER DAY
     Route: 042
     Dates: start: 20100826, end: 20100901
  7. FLUDARA [Suspect]
     Indication: ALLOGENIC BONE MARROW TRANSPLANTATION THERAPY
     Dosage: 30MGM2 PER DAY
     Route: 042
     Dates: start: 20100716, end: 20100720
  8. ETOPOSIDE [Concomitant]
     Indication: ALLOGENIC BONE MARROW TRANSPLANTATION THERAPY
     Dosage: 50MGM2 PER DAY
     Route: 042
     Dates: start: 20100713, end: 20100716
  9. POLYMYXIN-B-SULFATE [Concomitant]
     Dosage: 3IU6 PER DAY
     Route: 048
     Dates: start: 20100906, end: 20100919
  10. SULFAMETHOXAZOLE [Concomitant]
     Dosage: 1IUAX PER DAY
     Route: 048
     Dates: start: 20100906, end: 20100923
  11. ALDACTONE [Concomitant]
     Dosage: 25MG PER DAY
     Route: 048
     Dates: start: 20100907, end: 20100923
  12. KYTRIL [Concomitant]
     Dosage: 3MG PER DAY
     Route: 042
     Dates: start: 20100716, end: 20100721
  13. SOLU-MEDROL [Concomitant]
     Dosage: 500MG PER DAY
     Route: 042
     Dates: start: 20100908, end: 20100911
  14. AMIKACIN SULFATE [Concomitant]
     Dosage: 300MG PER DAY
     Dates: start: 20100921, end: 20100923
  15. ETOPOSIDE [Concomitant]
     Dosage: 100MG PER DAY
     Route: 042
     Dates: start: 20100912, end: 20100914
  16. IMMUNE GLOBULIN INTRAVENOUS (HUMAN) [Concomitant]
     Dosage: 5G PER DAY
     Route: 042
     Dates: start: 20100824, end: 20100826
  17. IFOSFAMIDE [Concomitant]
     Dosage: 2700MG PER DAY
     Route: 042
     Dates: start: 20100912, end: 20100914
  18. VEEN F [Concomitant]
     Dosage: 500ML PER DAY
     Route: 042
     Dates: start: 20100725, end: 20100807
  19. URSO 250 [Concomitant]
     Dosage: 600MG PER DAY
     Route: 048
     Dates: start: 20100712, end: 20100730
  20. LANSOPRAZOLE [Concomitant]
     Dosage: 30MG PER DAY
     Route: 048
     Dates: start: 20100511, end: 20100725
  21. ZOVIRAX [Concomitant]
     Dosage: 1000MG PER DAY
     Route: 048
     Dates: start: 20100715, end: 20100728
  22. FUROSEMIDE [Concomitant]
     Dosage: 20MG PER DAY
     Route: 048
     Dates: start: 20100902, end: 20100923
  23. VICCLOX [Concomitant]
     Dosage: 250MG PER DAY
     Route: 042
     Dates: start: 20100729, end: 20100811
  24. CIPROFLOXACIN HCL [Concomitant]
     Dosage: 300MG PER DAY
     Route: 042
     Dates: start: 20100920, end: 20100921
  25. FUNGUARD [Suspect]
     Dosage: 50MG PER DAY
     Route: 042
     Dates: start: 20100729, end: 20100824
  26. CYTARABINE [Concomitant]
     Indication: ALLOGENIC BONE MARROW TRANSPLANTATION THERAPY
     Dosage: 2IUAX PER DAY
     Route: 042
     Dates: start: 20100718, end: 20100718
  27. LEVOFLOXACIN [Concomitant]
     Dosage: 500MG PER DAY
     Route: 048
     Dates: start: 20100703, end: 20100727
  28. VANCOMYCIN HYDROCHLORIDE [Concomitant]
     Dosage: .5G PER DAY
     Route: 048
     Dates: start: 20100807, end: 20100823
  29. MAXIPIME [Concomitant]
     Dosage: 4G PER DAY
     Route: 042
     Dates: start: 20100727, end: 20100731
  30. BENAMBAX [Concomitant]
     Dosage: 300MG PER DAY
     Route: 055
     Dates: start: 20100816, end: 20100816
  31. AMBISOME [Concomitant]
     Dosage: 150MG PER DAY
     Route: 042
     Dates: start: 20100824, end: 20100901
  32. ZOMETA [Concomitant]
     Dosage: 4MG PER DAY
     Route: 042
     Dates: start: 20100904, end: 20100904
  33. ALKERAN [Suspect]
     Indication: ALLOGENIC BONE MARROW TRANSPLANTATION THERAPY
     Dosage: 140MGM2 PER DAY
     Route: 042
     Dates: start: 20100719, end: 20100720
  34. METHOTREXATE [Suspect]
     Dosage: 13MGM2 PER DAY
     Route: 042
     Dates: start: 20100728, end: 20100728
  35. MEROPENEM [Suspect]
     Dosage: 2G PER DAY
     Route: 042
     Dates: start: 20100731, end: 20100814
  36. ITRACONAZOLE [Concomitant]
     Dosage: 200MG PER DAY
     Route: 048
     Dates: start: 20100416, end: 20100728
  37. ALLOPURINOL [Concomitant]
     Dosage: 300MG PER DAY
     Route: 048
     Dates: start: 20100714, end: 20100725
  38. SOLU-MEDROL [Concomitant]
     Dosage: 500MG PER DAY
     Route: 042
     Dates: start: 20100714, end: 20100717
  39. VANCOMYCIN [Concomitant]
     Dosage: 750MG PER DAY
     Route: 042
     Dates: start: 20100730, end: 20100811
  40. CIPROFLOXACIN HCL [Concomitant]
     Dosage: 300MG PER DAY
     Route: 042
     Dates: start: 20100824, end: 20100901
  41. NEUTROGIN [Concomitant]
     Dosage: 100MG PER DAY
     Dates: start: 20100922, end: 20100923
  42. PARAPLATIN [Concomitant]
     Dosage: 90MG PER DAY
     Route: 042
     Dates: start: 20100912, end: 20100914
  43. FUROSEMIDE [Concomitant]
     Dosage: 40MG PER DAY
     Route: 042
     Dates: start: 20100710, end: 20100828
  44. MAXIPIME [Concomitant]
     Dosage: 2G PER DAY
     Route: 042
     Dates: start: 20100915, end: 20100916
  45. CYCLOSPORINE [Suspect]
     Indication: IMMUNOSUPPRESSION
     Dosage: 120MGM2 PER DAY
     Route: 042
     Dates: start: 20100721, end: 20100904
  46. METHOTREXATE [Suspect]
     Indication: IMMUNOSUPPRESSION
     Dosage: 20MGM2 PER DAY
     Route: 042
     Dates: start: 20100723, end: 20100723
  47. PARAPLATIN [Concomitant]
     Indication: ALLOGENIC BONE MARROW TRANSPLANTATION THERAPY
     Dosage: 96MGM2 PER DAY
     Route: 042
     Dates: start: 20100714, end: 20100717
  48. TANATRIL [Concomitant]
     Dosage: 5MG PER DAY
     Route: 048
     Dates: start: 20100907, end: 20100923
  49. ADENOSINE [Concomitant]
     Dosage: 26MG PER DAY
     Dates: start: 20100811, end: 20100822
  50. MORPHINE HCL ELIXIR [Concomitant]
     Dosage: 12MG PER DAY
     Dates: start: 20100730, end: 20100811

REACTIONS (2)
  - CARDIAC FAILURE [None]
  - RENAL DISORDER [None]
